FAERS Safety Report 4854571-1 (Version None)
Quarter: 2005Q4

REPORT INFORMATION
  Report Type: 
  Country: None (occurrence: None)
  Receive Date: 20051213
  Receipt Date: 20051108
  Transmission Date: 20060501
  Serious: Yes (Death)
  Sender: FDA-Public Use
  Company Number: MK200511-0173-1

PATIENT
  Age: 44 Year

DRUGS (1)
  1. OXYCODONE/APAP TABLETS (STRENGTH UNKNOWN) [Suspect]
     Dates: end: 20040101

REACTIONS (2)
  - MEDICATION ERROR [None]
  - OVERDOSE [None]
